FAERS Safety Report 17004324 (Version 8)
Quarter: 2020Q1

REPORT INFORMATION
  Report Type: Report from Study
  Country: JP (occurrence: JP)
  Receive Date: 20191107
  Receipt Date: 20200311
  Transmission Date: 20200409
  Serious: Yes (Death, Life-Threatening, Other)
  Sender: FDA-Public Use
  Company Number: JP-PFIZER INC-2019481418

PATIENT
  Age: 7 Year
  Sex: Male
  Weight: 20 kg

DRUGS (13)
  1. SAMSCA [Concomitant]
     Active Substance: TOLVAPTAN
     Indication: POLYURIA
     Dosage: 4.8 MG, 1X/DAY
     Route: 065
  2. LASIX [Concomitant]
     Active Substance: FUROSEMIDE
     Dosage: UNK
     Route: 048
  3. MIYA-BM [Concomitant]
     Active Substance: CLOSTRIDIUM BUTYRICUM SPORES STRAIN M-55
     Dosage: UNK
     Route: 048
  4. MAINTATE [Concomitant]
     Active Substance: BISOPROLOL FUMARATE
     Indication: HYPERTROPHIC CARDIOMYOPATHY
     Dosage: 1.5 MG, 2X/DAY (1.5 MG,12 HR)
     Route: 065
  5. REVATIO [Concomitant]
     Active Substance: SILDENAFIL CITRATE
     Indication: PULMONARY HYPERTENSION
     Dosage: 40 MG, 3X/DAY (40 MG,8 HR)
     Route: 065
  6. ALDACTONE A [Concomitant]
     Active Substance: SPIRONOLACTONE
     Dosage: UNK
     Route: 048
  7. EPPIKAJUTSUTO [Concomitant]
     Dosage: UNK
     Route: 048
  8. LANSOPRAZOLE. [Concomitant]
     Active Substance: LANSOPRAZOLE
     Dosage: UNK
     Route: 048
  9. THYRADIN-S [Concomitant]
     Active Substance: LEVOTHYROXINE
     Indication: HYPOTHYROIDISM
     Dosage: 40 UG, 1X/DAY
     Route: 065
  10. SIROLIMUS. [Suspect]
     Active Substance: SIROLIMUS
     Indication: LYMPHANGIOLEIOMYOMATOSIS
     Dosage: 0.7 MG, 1X/DAY (STARTED AT A DOSE OF 0.02 MG/KG/DAY, HALF AMOUNT OF THE REGULAR DOSE)
     Route: 048
     Dates: start: 20191003, end: 20191021
  11. SIROLIMUS. [Suspect]
     Active Substance: SIROLIMUS
     Dosage: 0.3 MG, 1X/DAY (REDUCED)
     Route: 048
     Dates: start: 20191022, end: 20191027
  12. INCREMIN [FERRIC PYROPHOSPHATE] [Concomitant]
     Dosage: UNK
     Route: 048
  13. ALLOPURINOL. [Concomitant]
     Active Substance: ALLOPURINOL
     Dosage: UNK
     Route: 048

REACTIONS (3)
  - Intra-abdominal haemorrhage [Fatal]
  - Renal failure [Unknown]
  - Septic shock [Fatal]

NARRATIVE: CASE EVENT DATE: 20191027
